FAERS Safety Report 8166786-8 (Version None)
Quarter: 2012Q1

REPORT INFORMATION
  Report Type: 
  Country: None (occurrence: None)
  Receive Date: 20120227
  Receipt Date: 20120131
  Transmission Date: 20120608
  Serious: No
  Sender: FDA-Public Use
  Company Number: US-MYLANLABS-2011S1024566

PATIENT
  Age: 74 Year
  Sex: Female

DRUGS (12)
  1. LANSOPRAZOLE [Suspect]
     Route: 048
     Dates: start: 20110701, end: 20111101
  2. LANSOPRAZOLE [Suspect]
     Indication: GASTROOESOPHAGEAL REFLUX DISEASE
     Route: 048
     Dates: start: 20110701, end: 20111101
  3. LANSOPRAZOLE [Suspect]
     Route: 048
     Dates: start: 20110701, end: 20111101
  4. LANSOPRAZOLE [Suspect]
     Route: 048
     Dates: start: 20110701, end: 20111101
  5. ASPIRIN [Concomitant]
     Route: 048
  6. ACETAMINOPHEN [Concomitant]
     Indication: ARTHRITIS
  7. LANSOPRAZOLE [Suspect]
     Indication: DYSPEPSIA
     Route: 048
     Dates: start: 20110701, end: 20111101
  8. LANSOPRAZOLE [Suspect]
     Route: 048
     Dates: start: 20110701, end: 20111101
  9. LANSOPRAZOLE [Suspect]
     Route: 048
     Dates: start: 20110701, end: 20111101
  10. LANSOPRAZOLE [Suspect]
     Route: 048
     Dates: start: 20110701, end: 20111101
  11. VITAMIN TAB [Concomitant]
  12. LANSOPRAZOLE [Suspect]
     Route: 048
     Dates: start: 20110701, end: 20111101

REACTIONS (8)
  - DRUG INEFFECTIVE [None]
  - DYSGEUSIA [None]
  - BLEEDING TIME PROLONGED [None]
  - ABNORMAL FAECES [None]
  - INCREASED TENDENCY TO BRUISE [None]
  - NAUSEA [None]
  - DYSPEPSIA [None]
  - GASTROOESOPHAGEAL REFLUX DISEASE [None]
